FAERS Safety Report 10498269 (Version 1)
Quarter: 2014Q4

REPORT INFORMATION
  Report Type: Spontaneous
  Country: US (occurrence: US)
  Receive Date: 20141006
  Receipt Date: 20141006
  Transmission Date: 20150528
  Serious: Yes (Hospitalization)
  Sender: FDA-Public Use
  Company Number: US-PFIZER INC-2014273336

PATIENT
  Age: 56 Year
  Sex: Male
  Weight: 118 kg

DRUGS (1)
  1. TIKOSYN [Suspect]
     Active Substance: DOFETILIDE
     Dosage: 500 UG, (ONE EVERY 12 HRS)
     Dates: start: 201112

REACTIONS (1)
  - Arrhythmia [Unknown]
